FAERS Safety Report 8290341-2 (Version None)
Quarter: 2012Q2

REPORT INFORMATION
  Report Type: 
  Country: None (occurrence: None)
  Receive Date: 20120417
  Receipt Date: 20120410
  Transmission Date: 20120825
  Serious: Yes (Hospitalization)
  Sender: FDA-Public Use
  Company Number: BE-B.I. PHARMACEUTICALS,INC./RIDGEFIELD-2012-BL-00258BL

PATIENT
  Sex: Female

DRUGS (4)
  1. PRADAXA [Suspect]
     Indication: ATRIAL FIBRILLATION
     Dosage: 220 MG
     Route: 048
     Dates: start: 20111121, end: 20120404
  2. UNI DIAMICRON [Concomitant]
     Indication: DIABETES MELLITUS
     Route: 048
  3. FUROSEMIDE [Concomitant]
     Indication: HYPERTENSION
     Route: 048
  4. PROGOR [Concomitant]
     Indication: HYPERTENSION
     Route: 048

REACTIONS (4)
  - CARDIAC FAILURE [None]
  - DYSPNOEA [None]
  - NASOPHARYNGITIS [None]
  - RENAL FAILURE ACUTE [None]
